FAERS Safety Report 9067320 (Version 1)
Quarter: 2013Q1

REPORT INFORMATION
  Report Type: Spontaneous
  Country: US (occurrence: US)
  Receive Date: 20130214
  Receipt Date: 20130214
  Transmission Date: 20140127
  Serious: Yes (Hospitalization, Other)
  Sender: FDA-Public Use
  Company Number: US-BAYER-2013-017788

PATIENT
  Age: 23 Year
  Sex: Female

DRUGS (10)
  1. YAZ [Suspect]
     Indication: MENSTRUATION IRREGULAR
  2. YAZ [Suspect]
     Indication: MENORRHAGIA
  3. YASMIN [Suspect]
     Indication: DYSFUNCTIONAL UTERINE BLEEDING
  4. YASMIN [Suspect]
     Indication: POLYCYSTIC OVARIES
  5. OCELLA [Suspect]
     Indication: MENSTRUAL CYCLE MANAGEMENT
  6. IBUPROFEN [Concomitant]
  7. CELEBREX [Concomitant]
  8. ADVIL [Concomitant]
     Dosage: 200 MG, UNK
  9. NORCO [Concomitant]
  10. ATIVAN [Concomitant]

REACTIONS (3)
  - Pulmonary embolism [Recovered/Resolved]
  - Deep vein thrombosis [None]
  - Cholelithotomy [None]
